FAERS Safety Report 6503529-5 (Version None)
Quarter: 2009Q4

REPORT INFORMATION
  Report Type: 
  Country: None (occurrence: None)
  Receive Date: 20091217
  Receipt Date: 20091209
  Transmission Date: 20100525
  Serious: Yes (Other)
  Sender: FDA-Public Use
  Company Number: US-MILLENNIUM PHARMACEUTICALS, INC.-2009-05127

PATIENT
  Sex: Male

DRUGS (2)
  1. VELCADE [Suspect]
     Indication: MULTIPLE MYELOMA
     Dosage: 1.3 MG/M2, CYCLIC
     Dates: start: 20090901
  2. DECADRON [Concomitant]
     Indication: MULTIPLE MYELOMA

REACTIONS (2)
  - PROGRESSIVE MUSCULAR ATROPHY [None]
  - TREATMENT NONCOMPLIANCE [None]
